FAERS Safety Report 8048225-0 (Version None)
Quarter: 2012Q1

REPORT INFORMATION
  Report Type: 
  Country: None (occurrence: None)
  Receive Date: 20120117
  Receipt Date: 20120110
  Transmission Date: 20120608
  Serious: Yes (Life-Threatening, Hospitalization, Disabling)
  Sender: FDA-Public Use
  Company Number: US-BAYER-2011-045949

PATIENT
  Age: 39 Year
  Sex: Female
  Weight: 47 kg

DRUGS (8)
  1. CITRANATAL 90 DHA [Concomitant]
     Indication: PRENATAL CARE
     Dosage: UNK UNK, QD
     Route: 048
     Dates: start: 20090304
  2. YASMIN [Suspect]
     Indication: CONTRACEPTION
     Dosage: UNK
     Dates: start: 20020101, end: 20020101
  3. CYCLOBENZAPRINE [Concomitant]
     Dosage: 10 MG, HS
  4. PRILOSEC [Concomitant]
     Dosage: UNK UNK, QD
     Route: 048
     Dates: start: 20090409
  5. YAZ [Suspect]
     Indication: CONTRACEPTION
     Dosage: UNK
     Dates: start: 20090201, end: 20090501
  6. MACROBID [Concomitant]
     Dosage: UNK
     Route: 048
     Dates: start: 20090505
  7. CIPROFLOXACIN [Concomitant]
     Dosage: 250 MG, BID
     Route: 048
     Dates: start: 20090506
  8. URELLE [Concomitant]
     Indication: DYSURIA
     Dosage: UNK
     Route: 048
     Dates: start: 20090526

REACTIONS (11)
  - PULMONARY EMBOLISM [None]
  - TRAUMATIC LUNG INJURY [None]
  - FATIGUE [None]
  - ANXIETY [None]
  - ANHEDONIA [None]
  - THROMBOSIS [None]
  - INJURY [None]
  - ASTHENIA [None]
  - PAIN [None]
  - GENERAL PHYSICAL HEALTH DETERIORATION [None]
  - EMOTIONAL DISTRESS [None]
